FAERS Safety Report 15924343 (Version 2)
Quarter: 2020Q2

REPORT INFORMATION
  Report Type: Report from Study
  Country: US (occurrence: US)
  Receive Date: 20190205
  Receipt Date: 20200521
  Transmission Date: 20200713
  Serious: Yes (Hospitalization, Other)
  Sender: FDA-Public Use
  Company Number: US-ACTELION-A-NJ2017-159405

PATIENT
  Sex: Female
  Weight: 92.52 kg

DRUGS (2)
  1. TRACLEER [Suspect]
     Active Substance: BOSENTAN
     Indication: PULMONARY ARTERIAL HYPERTENSION
     Dosage: 125 MG, BID
     Route: 048
  2. PREDNISONE. [Suspect]
     Active Substance: PREDNISONE
     Indication: PRODUCT USED FOR UNKNOWN INDICATION
     Route: 048

REACTIONS (10)
  - Food poisoning [Unknown]
  - Blood glucose decreased [Unknown]
  - Fall [Unknown]
  - Malaise [Unknown]
  - Nervousness [Unknown]
  - Weight increased [Unknown]
  - Dry skin [Unknown]
  - Skin exfoliation [Unknown]
  - Dyspnoea exertional [Unknown]
  - Hospitalisation [Unknown]
